FAERS Safety Report 4846917-5 (Version None)
Quarter: 2005Q4

REPORT INFORMATION
  Report Type: 
  Country: None (occurrence: None)
  Receive Date: 20051202
  Receipt Date: 20051121
  Transmission Date: 20060501
  Serious: Yes (Other)
  Sender: FDA-Public Use
  Company Number: 2005159590

PATIENT
  Age: 47 Year
  Sex: Male
  Weight: 79 kg

DRUGS (4)
  1. PREDNISONE [Suspect]
     Indication: ASTHMA
     Dosage: 25 MG, ORAL
     Route: 048
     Dates: start: 20051015, end: 20051019
  2. SERETIDE (FLUTICASONE PROPIONATE, SALMETEROL XINAFOATE) [Concomitant]
  3. BRICANYL [Concomitant]
  4. PENICILLIN V [Concomitant]

REACTIONS (2)
  - PSYCHOTIC DISORDER [None]
  - VISUAL DISTURBANCE [None]
